FAERS Safety Report 19315465 (Version 1)
Quarter: 2021Q2

REPORT INFORMATION
  Report Type: Spontaneous
  Country: CN (occurrence: CN)
  Receive Date: 20210527
  Receipt Date: 20210527
  Transmission Date: 20210717
  Serious: Yes (Hospitalization, Other)
  Sender: FDA-Public Use
  Company Number: CN-BAXTER-2021BAX012792

PATIENT
  Age: 51 Year
  Sex: Female
  Weight: 58 kg

DRUGS (8)
  1. DOXORUBICIN HYDROCHLORIDE. [Suspect]
     Active Substance: DOXORUBICIN HYDROCHLORIDE
     Indication: INVASIVE BREAST CARCINOMA
     Dosage: DOXORUBICIN HYDROCHLORIDE FOR INJECTION 75 MG + NS 100 ML
     Route: 041
     Dates: start: 20210507, end: 20210507
  2. DOCETAXEL. [Suspect]
     Active Substance: DOCETAXEL
     Indication: INVASIVE BREAST CARCINOMA
     Dosage: DOCETAXEL INJECTION 115 MG + NS 250 ML
     Route: 041
     Dates: start: 20210507, end: 20210507
  3. 0.9% SODIUM CHLORIDE INJECTION [Suspect]
     Active Substance: SODIUM CHLORIDE
     Dosage: DOXORUBICIN HYDROCHLORIDE FOR INJECTION 75 MG + NS 100 ML
     Route: 041
     Dates: start: 20210507, end: 20210507
  4. ENDOXAN [Suspect]
     Active Substance: CYCLOPHOSPHAMIDE
     Dosage: ENDOXAN FOR INJECTION 0.77G + NS 100 ML
     Route: 041
     Dates: start: 20210507, end: 20210507
  5. 0.9% SODIUM CHLORIDE INJECTION [Suspect]
     Active Substance: SODIUM CHLORIDE
     Indication: MEDICATION DILUTION
     Dosage: ENDOXAN FOR INJECTION 0.77G + NS 100 ML
     Route: 041
     Dates: start: 20210507, end: 20210507
  6. 0.9% SODIUM CHLORIDE INJECTION [Suspect]
     Active Substance: SODIUM CHLORIDE
     Dosage: DOCETAXEL INJECTION 115 MG + NS 250 ML
     Route: 041
     Dates: start: 20210507, end: 20210507
  7. EPIRUBICIN [Suspect]
     Active Substance: EPIRUBICIN
     Indication: INVASIVE BREAST CARCINOMA
     Dosage: PRIOR DRUG
     Route: 065
  8. ENDOXAN [Suspect]
     Active Substance: CYCLOPHOSPHAMIDE
     Indication: INVASIVE BREAST CARCINOMA
     Dosage: PRIOR DRUG
     Route: 065

REACTIONS (3)
  - Leukopenia [Recovered/Resolved]
  - Leukopenia [Unknown]
  - Myelosuppression [Unknown]

NARRATIVE: CASE EVENT DATE: 20210511
